FAERS Safety Report 4903068-9 (Version None)
Quarter: 2006Q1

REPORT INFORMATION
  Report Type: 
  Country: None (occurrence: None)
  Receive Date: 20060207
  Receipt Date: 20060127
  Transmission Date: 20060701
  Serious: Yes (Hospitalization)
  Sender: FDA-Public Use
  Company Number: FR-JNJFOC-20050403698

PATIENT
  Age: 31 Year
  Sex: Male

DRUGS (4)
  1. REMICADE [Suspect]
     Indication: ANKYLOSING SPONDYLITIS
     Dosage: 5MK/KG
     Route: 042
  2. CORTANCYL [Concomitant]
     Dosage: 0.5-1 MG/KG = 30-60 MG QD
  3. CORTANCYL [Concomitant]
     Indication: UVEITIS
  4. SULFASALAZINE [Concomitant]

REACTIONS (10)
  - DISSEMINATED TUBERCULOSIS [None]
  - HILAR LYMPHADENOPATHY [None]
  - LUNG NEOPLASM [None]
  - PERICARDIAL EFFUSION [None]
  - PERICARDITIS TUBERCULOUS [None]
  - PLEURAL EFFUSION [None]
  - PULMONARY GRANULOMA [None]
  - PULMONARY TUBERCULOSIS [None]
  - TUBERCULOSIS [None]
  - TUBERCULOSIS OF PERIPHERAL LYMPH NODES [None]
